FAERS Safety Report 6154876-0 (Version None)
Quarter: 2009Q2

REPORT INFORMATION
  Report Type: 
  Country: None (occurrence: None)
  Receive Date: 20090414
  Receipt Date: 20090402
  Transmission Date: 20091009
  Serious: Yes (Other)
  Sender: FDA-Public Use
  Company Number: US-PFIZER INC-2009179919

PATIENT
  Sex: Male

DRUGS (1)
  1. CHANTIX [Suspect]

REACTIONS (5)
  - ABNORMAL DREAMS [None]
  - ANOREXIA [None]
  - DEPRESSED MOOD [None]
  - HOMICIDAL IDEATION [None]
  - SUICIDAL IDEATION [None]
